FAERS Safety Report 14662266 (Version 1)
Quarter: 2018Q1

REPORT INFORMATION
  Report Type: Spontaneous
  Country: US (occurrence: US)
  Receive Date: 20180321
  Receipt Date: 20180321
  Transmission Date: 20180509
  Serious: No
  Sender: FDA-Public Use
  Company Number: US-SUN PHARMACEUTICAL INDUSTRIES LTD-2017SUN00086

PATIENT
  Sex: Female

DRUGS (1)
  1. TECHNETIUM TC-99M MEBROFENIN KIT [Suspect]
     Active Substance: TECHNETIUM TC-99M MEBROFENIN
     Indication: ABDOMINAL PAIN
     Dosage: 8 MCI, OD
     Route: 042
     Dates: start: 20170221, end: 20170221

REACTIONS (1)
  - Rash [Recovered/Resolved]

NARRATIVE: CASE EVENT DATE: 20170221
